FAERS Safety Report 23264185 (Version 2)
Quarter: 2024Q3

REPORT INFORMATION
  Report Type: Report from Study
  Country: IT (occurrence: IT)
  Receive Date: 20231205
  Receipt Date: 20240827
  Transmission Date: 20241016
  Serious: Yes (Death, Congenital Anomaly, Other)
  Sender: GLAXOSMITHKLINE
  Company Number: IT-GLAXOSMITHKLINE-IT2023GSK169336

PATIENT

DRUGS (1)
  1. VALACYCLOVIR HYDROCHLORIDE [Suspect]
     Active Substance: VALACYCLOVIR HYDROCHLORIDE
     Indication: Cytomegalovirus infection
     Dosage: 2 G, QID 8G/DAY
     Route: 064

REACTIONS (18)
  - Congenital cytomegalovirus infection [Fatal]
  - Neonatal respiratory failure [Fatal]
  - Neonatal cardiac failure [Fatal]
  - Vertical infection transmission [Unknown]
  - Ascites [Unknown]
  - Gastrointestinal malformation [Unknown]
  - Congenital central nervous system anomaly [Unknown]
  - Nonreassuring foetal heart rate pattern [Unknown]
  - Neonatal dyspnoea [Unknown]
  - Foetal growth restriction [Unknown]
  - Low birth weight baby [Unknown]
  - Thrombocytopenia neonatal [Unknown]
  - Petechiae [Unknown]
  - White matter lesion [Unknown]
  - Cerebral ventricle dilatation [Unknown]
  - General physical health deterioration [Unknown]
  - Premature baby [Recovered/Resolved]
  - Foetal exposure during pregnancy [Unknown]
